FAERS Safety Report 22662907 (Version 5)
Quarter: 2024Q1

REPORT INFORMATION
  Report Type: Spontaneous
  Country: PL (occurrence: PL)
  Receive Date: 20230702
  Receipt Date: 20240307
  Transmission Date: 20240410
  Serious: Yes (Death, Life-Threatening, Hospitalization, Other)
  Sender: FDA-Public Use
  Company Number: PL-CELLTRION INC.-2023PL013174

PATIENT

DRUGS (1)
  1. RITUXIMAB [Suspect]
     Active Substance: RITUXIMAB
     Indication: Mantle cell lymphoma stage III
     Dosage: UNK
     Route: 065

REACTIONS (4)
  - Tumour lysis syndrome [Fatal]
  - Respiratory failure [Unknown]
  - Renal failure [Unknown]
  - Intentional product use issue [Unknown]
